FAERS Safety Report 5512360-9 (Version None)
Quarter: 2007Q4

REPORT INFORMATION
  Report Type: 
  Country: None (occurrence: None)
  Receive Date: 20071107
  Receipt Date: 20071022
  Transmission Date: 20080405
  Serious: Yes (Death)
  Sender: FDA-Public Use
  Company Number: 2007BM000152

PATIENT
  Age: 31 Year
  Sex: Male

DRUGS (5)
  1. PREDNISONE [Suspect]
     Indication: DISCOMFORT
     Dosage: 20 MG QD PO
     Route: 048
  2. PREDNISONE [Suspect]
     Indication: EOSINOPHILIA
     Dosage: 20 MG QD PO
     Route: 048
  3. PREDNISONE [Suspect]
     Indication: PAIN
     Dosage: 20 MG QD PO
     Route: 048
  4. PREDNISOLONE SODIUM PHOSPHATE [Suspect]
  5. RANITIDINE [Concomitant]

REACTIONS (5)
  - HEPATOSPLENOMEGALY [None]
  - LYMPHOPROLIFERATIVE DISORDER [None]
  - MULTI-ORGAN FAILURE [None]
  - SEPSIS [None]
  - STRONGYLOIDIASIS [None]
